FAERS Safety Report 13418141 (Version 1)
Quarter: 2017Q2

REPORT INFORMATION
  Report Type: Spontaneous
  Country: US (occurrence: US)
  Receive Date: 20170406
  Receipt Date: 20170406
  Transmission Date: 20170830
  Serious: Yes (Other)
  Sender: FDA-Public Use
  Company Number: US-BRISTOL-MYERS SQUIBB COMPANY-BMS-2017-027652

PATIENT
  Sex: Female
  Weight: 95.24 kg

DRUGS (2)
  1. BRIMONIDINE [Concomitant]
     Active Substance: BRIMONIDINE TARTRATE
     Indication: GLAUCOMA
     Dosage: UNK
     Route: 065
  2. ELIQUIS [Suspect]
     Active Substance: APIXABAN
     Indication: CEREBROVASCULAR ACCIDENT PROPHYLAXIS
     Dosage: 5 MG, BID
     Route: 048
     Dates: start: 20170315

REACTIONS (10)
  - Faeces discoloured [Unknown]
  - Somnolence [Unknown]
  - Amnesia [Unknown]
  - Balance disorder [Unknown]
  - Asthenopia [Unknown]
  - Feeling abnormal [Unknown]
  - Congenital thrombocyte disorder [Unknown]
  - Memory impairment [Unknown]
  - Contusion [Unknown]
  - Fatigue [Unknown]
